FAERS Safety Report 8137846-2 (Version None)
Quarter: 2012Q1

REPORT INFORMATION
  Report Type: 
  Country: None (occurrence: None)
  Receive Date: 20120215
  Receipt Date: 20120213
  Transmission Date: 20120608
  Serious: Yes (Hospitalization)
  Sender: FDA-Public Use
  Company Number: IT-BAYER-2012-013970

PATIENT

DRUGS (1)
  1. NEXAVAR [Suspect]
     Indication: HEPATIC NEOPLASM MALIGNANT
     Dosage: DAILY DOSE 800 MG
     Route: 048
     Dates: start: 20110526, end: 20120126

REACTIONS (4)
  - ECCHYMOSIS [None]
  - HAEMOPTYSIS [None]
  - TRACHEAL INFLAMMATION [None]
  - LOWER RESPIRATORY TRACT INFLAMMATION [None]
